FAERS Safety Report 10658490 (Version 1)
Quarter: 2014Q4

REPORT INFORMATION
  Report Type: Spontaneous
  Country: US (occurrence: None)
  Receive Date: 20141205
  Receipt Date: 20141205
  Transmission Date: 20150529
  Serious: Yes (Hospitalization)
  Sender: FDA-Public Use
  Company Number: 163-POMAL-14085874

PATIENT
  Age: 78 Year
  Sex: Female

DRUGS (4)
  1. METHYLPHENIDATE HCL ER [Concomitant]
  2. POMALYST [Suspect]
     Active Substance: POMALIDOMIDE
     Indication: PLASMA CELL MYELOMA
     Dosage: 21 IN 21 D,  TEMPORARILY INTERRUPTED
     Route: 048
     Dates: start: 20140811
  3. CENTRUM SILVER [Concomitant]
     Active Substance: VITAMINS
  4. ESOMEPRAZOLE SODIUM ((ESOMEPRAZOLE SODIUM) [Concomitant]

REACTIONS (6)
  - Urinary tract infection [None]
  - Thrombocytopenia [None]
  - Febrile neutropenia [None]
  - Dehydration [None]
  - Sepsis [None]
  - Anaemia [None]

NARRATIVE: CASE EVENT DATE: 20140814
